FAERS Safety Report 11195342 (Version 1)
Quarter: 2015Q2

REPORT INFORMATION
  Report Type: Report from Study
  Country: US (occurrence: None)
  Receive Date: 20150603
  Receipt Date: 20150603
  Transmission Date: 20150821
  Serious: No
  Sender: FDA-Public Use
  Company Number: 2014TASUS000652

PATIENT
  Age: 52 Year
  Sex: Female
  Weight: 72.6 kg

DRUGS (1)
  1. HETLIOZ [Suspect]
     Active Substance: TASIMELTEON
     Indication: CIRCADIAN RHYTHM SLEEP DISORDER
     Route: 048
     Dates: start: 20141226

REACTIONS (17)
  - Lethargy [None]
  - Hangover [None]
  - Ear congestion [None]
  - Rhinorrhoea [None]
  - Sneezing [None]
  - Decreased appetite [None]
  - Vaginal discharge [None]
  - Metrorrhagia [None]
  - Eyelid skin dryness [None]
  - Productive cough [None]
  - Wrong technique in drug usage process [None]
  - Breast tenderness [None]
  - Drug effect delayed [None]
  - Somnolence [None]
  - Back pain [None]
  - Medical device discomfort [None]
  - Urinary tract infection [None]

NARRATIVE: CASE EVENT DATE: 201412
